FAERS Safety Report 6237640-3 (Version None)
Quarter: 2009Q2

REPORT INFORMATION
  Report Type: 
  Country: None (occurrence: None)
  Receive Date: 20090619
  Receipt Date: 20090615
  Transmission Date: 20091009
  Serious: Yes (Other)
  Sender: FDA-Public Use
  Company Number: FR-MERCK-0906FRA00062

PATIENT
  Age: 61 Year
  Sex: Male

DRUGS (9)
  1. EMEND [Suspect]
     Route: 048
     Dates: start: 20090113, end: 20090113
  2. EMEND [Suspect]
     Route: 048
     Dates: start: 20090114
  3. CISPLATIN [Suspect]
     Route: 042
     Dates: start: 20090113, end: 20090113
  4. FLUOROURACIL [Suspect]
     Route: 042
     Dates: start: 20090113, end: 20090116
  5. HYDROCHLOROTHIAZIDE AND VALSARTAN [Suspect]
     Route: 048
     Dates: end: 20090117
  6. CETUXIMAB [Concomitant]
     Route: 042
     Dates: start: 20090113
  7. FENTANYL [Concomitant]
     Route: 065
  8. MORPHINE SULFATE [Concomitant]
     Route: 065
  9. ONDANSETRON HYDROCHLORIDE [Concomitant]
     Route: 065

REACTIONS (5)
  - CONVULSION [None]
  - DIARRHOEA [None]
  - HYPOCALCAEMIA [None]
  - HYPONATRAEMIA [None]
  - RESPIRATORY DISTRESS [None]
